FAERS Safety Report 15958474 (Version 2)
Quarter: 2019Q1

REPORT INFORMATION
  Report Type: Spontaneous
  Country: US (occurrence: US)
  Receive Date: 20190213
  Receipt Date: 20190220
  Transmission Date: 20190417
  Serious: No
  Sender: FDA-Public Use
  Company Number: US-009507513-1902USA004278

PATIENT
  Age: 22 Year
  Sex: Female

DRUGS (1)
  1. NEXPLANON [Suspect]
     Active Substance: ETONOGESTREL
     Indication: CONTRACEPTION
     Dosage: 1 ROD 3 YEARS; RIGHT ARM
     Route: 059
     Dates: start: 20180725

REACTIONS (2)
  - Gastroenteritis viral [Unknown]
  - Abdominal pain [Unknown]

NARRATIVE: CASE EVENT DATE: 201812
